FAERS Safety Report 25607308 (Version 1)
Quarter: 2025Q3

REPORT INFORMATION
  Report Type: Report from Study
  Country: US (occurrence: US)
  Receive Date: 20250725
  Receipt Date: 20250725
  Transmission Date: 20251020
  Serious: No
  Sender: SUNOVION
  Company Number: US-SMPA-2025SPA009057AA

PATIENT

DRUGS (3)
  1. ORGOVYX [Suspect]
     Active Substance: RELUGOLIX
     Indication: Prostate cancer
     Route: 048
  2. ORGOVYX [Suspect]
     Active Substance: RELUGOLIX
     Route: 048
     Dates: start: 20250319
  3. IRON [Concomitant]
     Active Substance: IRON
     Dosage: 1 TABLET EVERY OTHER DAY
     Route: 065

REACTIONS (5)
  - Blood creatinine abnormal [Unknown]
  - Immune system disorder [Unknown]
  - Platelet count decreased [Unknown]
  - Vomiting [Recovering/Resolving]
  - Nausea [Recovering/Resolving]
